FAERS Safety Report 4479933-6 (Version None)
Quarter: 2004Q3

REPORT INFORMATION
  Report Type: 
  Country: None (occurrence: None)
  Receive Date: 20040923
  Receipt Date: 20040617
  Transmission Date: 20050211
  Serious: No
  Sender: FDA-Public Use
  Company Number: USA040568239

PATIENT
  Age: 74 Year
  Sex: Female

DRUGS (3)
  1. FORTEO [Suspect]
     Indication: OSTEOPOROSIS
     Dosage: 20 UG
     Dates: start: 20040519
  2. EVISTA [Concomitant]
  3. FOSAMAX [Concomitant]

REACTIONS (5)
  - BRONCHITIS [None]
  - FATIGUE [None]
  - INSOMNIA [None]
  - PANIC REACTION [None]
  - PHARYNGITIS [None]
